FAERS Safety Report 6058195-2 (Version None)
Quarter: 2009Q1

REPORT INFORMATION
  Report Type: 
  Country: None (occurrence: None)
  Receive Date: 20090130
  Receipt Date: 20090122
  Transmission Date: 20090719
  Serious: Yes (Hospitalization)
  Sender: FDA-Public Use
  Company Number: FR-PFIZER INC-2009159971

PATIENT

DRUGS (9)
  1. TAHOR [Suspect]
     Indication: DYSLIPIDAEMIA
     Route: 048
     Dates: start: 20081115, end: 20081215
  2. DIAMICRON [Suspect]
     Indication: DIABETES MELLITUS
     Route: 048
     Dates: start: 20081001, end: 20081215
  3. BIPRETERAX [Concomitant]
     Indication: HYPERTENSION
     Dosage: 4 MG/1.25 MG
     Route: 048
     Dates: start: 20081115
  4. KARDEGIC [Concomitant]
     Indication: CEREBROVASCULAR ACCIDENT PROPHYLAXIS
     Dosage: 75 MG, UNK
     Route: 048
     Dates: start: 20081115
  5. GLUCOPHAGE [Concomitant]
     Indication: DIABETES MELLITUS
     Dosage: 1000 MG, 2X/DAY
     Route: 048
     Dates: start: 20000101, end: 20081215
  6. LANTUS [Concomitant]
     Indication: DIABETES MELLITUS
     Dosage: 18 IU, 1X/DAY
     Route: 058
     Dates: start: 20060116
  7. BISOPROLOL [Concomitant]
     Indication: HYPERTENSION
     Dosage: 10 MG, 1X/DAY
     Route: 048
     Dates: start: 20080101
  8. AMLOR [Concomitant]
     Indication: HYPERTENSION
     Dosage: 10 MG, 1X/DAY
     Route: 048
     Dates: start: 20070501
  9. GINKOR FORT [Concomitant]
     Indication: VENOUS INSUFFICIENCY
     Dosage: 1 DF, 2X/DAY
     Route: 048
     Dates: start: 20060101

REACTIONS (2)
  - CHOLESTASIS [None]
  - CYTOLYTIC HEPATITIS [None]
